FAERS Safety Report 11297535 (Version 1)
Quarter: 2015Q3

REPORT INFORMATION
  Report Type: Spontaneous
  Country: US (occurrence: US)
  Receive Date: 20150722
  Receipt Date: 20150722
  Transmission Date: 20151125
  Serious: No
  Sender: FDA-Public Use
  Company Number: US-ELI_LILLY_AND_COMPANY-US201105005880

PATIENT
  Age: 64 Year

DRUGS (3)
  1. HEPARIN [Concomitant]
     Active Substance: HEPARIN SODIUM
     Dosage: 7000 U, UNK
  2. INTEGRILIN [Concomitant]
     Active Substance: EPTIFIBATIDE
     Dosage: 2 DF, UNK
  3. EFFIENT [Suspect]
     Active Substance: PRASUGREL HYDROCHLORIDE
     Dosage: 60 MG, LOADING DOSE
     Dates: start: 20110517, end: 20110517

REACTIONS (1)
  - Incorrect dose administered [Unknown]
